FAERS Safety Report 22085422 (Version 1)
Quarter: 2023Q1

REPORT INFORMATION
  Report Type: Spontaneous
  Country: US (occurrence: None)
  Receive Date: 20230310
  Receipt Date: 20230310
  Transmission Date: 20230417
  Serious: Yes (Hospitalization)
  Sender: FDA-Public Use
  Company Number: None

PATIENT
  Age: 67 Year
  Sex: Male
  Weight: 91.8 kg

DRUGS (19)
  1. VYVGART [Suspect]
     Active Substance: EFGARTIGIMOD ALFA-FCAB
     Dates: start: 20220620, end: 20221115
  2. AZATHIOPRINE [Concomitant]
  3. BUPROPION [Concomitant]
  4. FAMOTIDINE [Concomitant]
     Active Substance: FAMOTIDINE
  5. GABAPENTIN [Concomitant]
  6. HYDROCHLOROTHIAZIDE [Concomitant]
     Active Substance: HYDROCHLOROTHIAZIDE
  7. LISINOPRIL [Concomitant]
  8. METFORMIN [Concomitant]
  9. PRAVASTATIN [Concomitant]
     Active Substance: PRAVASTATIN
  10. PYRIDOSTIGMINE [Concomitant]
     Active Substance: PYRIDOSTIGMINE
  11. TRAZODONE [Concomitant]
     Active Substance: TRAZODONE HYDROCHLORIDE
  12. CALCIUM [Concomitant]
  13. VITAMIN C [Concomitant]
     Active Substance: ASCORBIC ACID
  14. VITAMIN D3 [Concomitant]
     Active Substance: CHOLECALCIFEROL
  15. GLUCOSAMINE [Concomitant]
     Active Substance: GLUCOSAMINE
  16. Multivitamin [Concomitant]
  17. POTASSIUM [Concomitant]
  18. ZINC [Concomitant]
     Active Substance: ZINC
  19. MELOXICAM [Concomitant]
     Active Substance: MELOXICAM

REACTIONS (7)
  - Arthralgia [None]
  - Sleep disorder [None]
  - Hypophagia [None]
  - Therapy cessation [None]
  - Dysstasia [None]
  - Balance disorder [None]
  - Arthralgia [None]

NARRATIVE: CASE EVENT DATE: 20221210
